FAERS Safety Report 6218000-8 (Version None)
Quarter: 2009Q2

REPORT INFORMATION
  Report Type: 
  Country: None (occurrence: None)
  Receive Date: 20090608
  Receipt Date: 20090608
  Transmission Date: 20091009
  Serious: Yes (Hospitalization)
  Sender: FDA-Public Use
  Company Number: TR-ROXANE LABORATORIES, INC.-2009-DE-03802GD

PATIENT
  Age: 23 Year
  Sex: Female

DRUGS (7)
  1. NAPROXEN [Suspect]
     Indication: GINGIVITIS
     Dosage: 550MG
  2. NAPROXEN [Suspect]
     Dosage: 550MG
  3. PIROXICAM [Suspect]
     Indication: URINARY TRACT INFECTION
     Dosage: 20MG
  4. DICLOFENAC SODIUM [Suspect]
     Indication: URINARY TRACT INFECTION
     Dosage: 150MG
  5. AMPICILLIN WITH SULBACTAM [Concomitant]
     Indication: GINGIVITIS
  6. CIPROFLOXACIN [Concomitant]
     Indication: URINARY TRACT INFECTION
     Dosage: 1000MG
  7. CLINDAMYCIN [Concomitant]
     Indication: URINARY TRACT INFECTION
     Dosage: 1800MG

REACTIONS (5)
  - COLITIS [None]
  - DIARRHOEA [None]
  - GASTROINTESTINAL EROSION [None]
  - LARGE INTESTINE PERFORATION [None]
  - LOWER GASTROINTESTINAL HAEMORRHAGE [None]
